FAERS Safety Report 12389837 (Version 1)
Quarter: 2016Q2

REPORT INFORMATION
  Report Type: Spontaneous
  Country: BR (occurrence: BR)
  Receive Date: 20160520
  Receipt Date: 20160520
  Transmission Date: 20160815
  Serious: Yes (Other)
  Sender: FDA-Public Use
  Company Number: BR-SA-2015SA108880

PATIENT
  Age: 40 Year
  Sex: Female
  Weight: 96 kg

DRUGS (3)
  1. UTROGESTAN [Concomitant]
     Active Substance: PROGESTERONE
     Indication: ABORTION SPONTANEOUS
  2. CLEXANE [Suspect]
     Active Substance: ENOXAPARIN SODIUM
     Indication: HYPERCOAGULATION
     Route: 065
     Dates: start: 20150718
  3. UTROGESTAN [Concomitant]
     Active Substance: PROGESTERONE
     Indication: UTERINE REPAIR

REACTIONS (2)
  - Abortion [Unknown]
  - Exposure during pregnancy [Unknown]

NARRATIVE: CASE EVENT DATE: 20150718
